FAERS Safety Report 16695415 (Version 1)
Quarter: 2019Q3

REPORT INFORMATION
  Report Type: Spontaneous
  Country: FR (occurrence: FR)
  Receive Date: 20190813
  Receipt Date: 20190813
  Transmission Date: 20191004
  Serious: Yes (Hospitalization)
  Sender: FDA-Public Use
  Company Number: PHHY2019FR176950

PATIENT

DRUGS (1)
  1. ATROPINE SULFATE. [Suspect]
     Active Substance: ATROPINE SULFATE
     Indication: EYE DISORDER
     Dosage: 20 ML, 1 TOTAL
     Route: 047
     Dates: start: 20190717

REACTIONS (4)
  - Mydriasis [Recovered/Resolved]
  - Accidental overdose [Recovered/Resolved]
  - Photophobia [Recovered/Resolved]
  - Hypertonia [Recovered/Resolved]

NARRATIVE: CASE EVENT DATE: 20190717
